FAERS Safety Report 12291736 (Version 1)
Quarter: 2016Q2

REPORT INFORMATION
  Report Type: Report from Study
  Country: US (occurrence: US)
  Receive Date: 20160421
  Receipt Date: 20160421
  Transmission Date: 20160815
  Serious: No
  Sender: FDA-Public Use
  Company Number: US-AMGEN-USASL2016023235

PATIENT
  Age: 75 Year
  Sex: Female
  Weight: 52.15 kg

DRUGS (1)
  1. REPATHA [Suspect]
     Active Substance: EVOLOCUMAB
     Indication: HYPERCHOLESTEROLAEMIA
     Dosage: 140 MG, Q2WK
     Route: 058
     Dates: start: 20160118, end: 20160310

REACTIONS (5)
  - Asthenia [Recovered/Resolved]
  - Fatigue [Unknown]
  - Malaise [Unknown]
  - Nasopharyngitis [Recovered/Resolved]
  - Viral infection [Unknown]

NARRATIVE: CASE EVENT DATE: 2016
